FAERS Safety Report 8211797-7 (Version None)
Quarter: 2012Q1

REPORT INFORMATION
  Report Type: 
  Country: None (occurrence: None)
  Receive Date: 20120228
  Receipt Date: 20110916
  Transmission Date: 20120608
  Serious: Yes (Hospitalization, Other)
  Sender: FDA-Public Use
  Company Number: RB-32232-2011

PATIENT
  Age: 27 Year
  Sex: Female

DRUGS (2)
  1. SUBOXONE [Suspect]
     Indication: DRUG DEPENDENCE
     Dosage: (24 MG,  24 MG DAILY SUBLINGUAL)
     Route: 060
     Dates: start: 20110101, end: 20110901
  2. CONTRACEPTIVES [Concomitant]

REACTIONS (2)
  - HEPATIC ENZYME INCREASED [None]
  - JAUNDICE [None]
